FAERS Safety Report 8522814-9 (Version None)
Quarter: 2012Q3

REPORT INFORMATION
  Report Type: 
  Country: None (occurrence: None)
  Receive Date: 20120720
  Receipt Date: 20120710
  Transmission Date: 20120928
  Serious: Yes (Other)
  Sender: FDA-Public Use
  Company Number: TR-AMGEN-TURSP2012022836

PATIENT
  Age: 40 Year
  Sex: Female

DRUGS (1)
  1. ENBREL [Suspect]
     Indication: ANKYLOSING SPONDYLITIS
     Dosage: 50 MG, WEEKLY
     Route: 058
     Dates: start: 20120322

REACTIONS (5)
  - BLOOD PRESSURE INCREASED [None]
  - INJECTION SITE PAIN [None]
  - HEADACHE [None]
  - INCREASED APPETITE [None]
  - WEIGHT INCREASED [None]
